FAERS Safety Report 9436775 (Version 1)
Quarter: 2013Q3

REPORT INFORMATION
  Report Type: Spontaneous
  Country: IT (occurrence: IT)
  Receive Date: 20130802
  Receipt Date: 20130802
  Transmission Date: 20140515
  Serious: Yes (Other)
  Sender: FDA-Public Use
  Company Number: IT-JNJFOC-20130715486

PATIENT
  Age: 54 Year
  Sex: Female
  Weight: 92 kg

DRUGS (5)
  1. CAELYX [Suspect]
     Indication: OVARIAN CANCER
     Route: 042
     Dates: start: 20130506, end: 20130506
  2. CAELYX [Suspect]
     Indication: OVARIAN CANCER
     Route: 042
     Dates: start: 20130617, end: 20130617
  3. CAELYX [Suspect]
     Indication: OVARIAN CANCER
     Dosage: DOSE WAS REDUCED OF 30%
     Route: 042
     Dates: start: 20130715, end: 20130715
  4. LANSOPRAZOLE [Concomitant]
     Indication: PRODUCT USED FOR UNKNOWN INDICATION
     Route: 048
     Dates: start: 20120910, end: 20130719
  5. PLASIL [Concomitant]
     Indication: PRODUCT USED FOR UNKNOWN INDICATION
     Route: 048
     Dates: start: 20130326, end: 20130719

REACTIONS (4)
  - Aphthous stomatitis [Recovering/Resolving]
  - Dry mouth [Recovering/Resolving]
  - Onychomycosis [Recovering/Resolving]
  - Palmar-plantar erythrodysaesthesia syndrome [Recovering/Resolving]
